FAERS Safety Report 9484682 (Version 1)
Quarter: 2013Q3

REPORT INFORMATION
  Report Type: Spontaneous
  Country: US (occurrence: US)
  Receive Date: 20130828
  Receipt Date: 20130828
  Transmission Date: 20140515
  Serious: Yes (Death)
  Sender: FDA-Public Use
  Company Number: US-AMGEN-KDL434404

PATIENT
  Sex: 0

DRUGS (6)
  1. ENBREL [Suspect]
     Indication: PRODUCT USED FOR UNKNOWN INDICATION
     Dosage: 50 MG, QWK
     Route: 058
  2. DEXTROPROPOXYPHENE NAPSILATE W/ ACETAMINOPHEN [Concomitant]
     Dosage: UNK UNK, UNK
  3. RALOXIFEN HCL [Concomitant]
     Dosage: 60 MG, UNK
  4. CITALOPRAM [Concomitant]
     Dosage: 10 MG, UNK
  5. BUDESONIDE [Concomitant]
     Dosage: 3 MG, QD
  6. TYLENOL SINUS MEDICATION [Concomitant]

REACTIONS (1)
  - Death [Fatal]
